FAERS Safety Report 12131454 (Version 1)
Quarter: 2016Q1

REPORT INFORMATION
  Report Type: Spontaneous
  Country: US (occurrence: US)
  Receive Date: 20160301
  Receipt Date: 20160301
  Transmission Date: 20160526
  Serious: No
  Sender: FDA-Public Use
  Company Number: US-JNJFOC-20160119619

PATIENT
  Age: 29 Year
  Sex: Female

DRUGS (26)
  1. FERROUS SULFATE [Concomitant]
     Active Substance: FERROUS SULFATE\FERROUS SULFATE, DRIED
     Route: 048
  2. FOLIC ACID. [Concomitant]
     Active Substance: FOLIC ACID
     Route: 048
  3. LEVOTHYROXINE. [Concomitant]
     Active Substance: LEVOTHYROXINE
     Dosage: EVERY MORNING
     Route: 048
  4. ALBUTEROL SULFATE. [Concomitant]
     Active Substance: ALBUTEROL SULFATE
     Route: 055
  5. AMLODIPINE BESYLATE. [Concomitant]
     Active Substance: AMLODIPINE BESYLATE
     Dosage: BEFORE BREAKFAST
     Route: 065
  6. MIRTAZAPINE. [Concomitant]
     Active Substance: MIRTAZAPINE
     Dosage: EVERY NIGHT AT BEDTIME
     Route: 048
  7. ONDANSETRON [Concomitant]
     Active Substance: ONDANSETRON
     Indication: NAUSEA
     Route: 048
  8. SIMPONI [Suspect]
     Active Substance: GOLIMUMAB
     Indication: COLITIS ULCERATIVE
     Route: 058
  9. CLONAZEPAM. [Concomitant]
     Active Substance: CLONAZEPAM
     Route: 048
  10. OMEPRAZOLE. [Concomitant]
     Active Substance: OMEPRAZOLE
     Dosage: EVERY MORNING
     Route: 048
  11. ONDANSETRON [Concomitant]
     Active Substance: ONDANSETRON
     Indication: VOMITING
     Route: 048
  12. PROPRANOLOL [Concomitant]
     Active Substance: PROPRANOLOL\PROPRANOLOL HYDROCHLORIDE
     Route: 048
  13. ULTRAM [Concomitant]
     Active Substance: TRAMADOL HYDROCHLORIDE
     Dosage: 1 TABLET EVERY 4 HOURS
     Route: 048
  14. OXCARBAZEPINE. [Concomitant]
     Active Substance: OXCARBAZEPINE
     Dosage: 300 MG IN MORNING AND 900 AT BEDTIME
     Route: 048
  15. SIMPONI [Suspect]
     Active Substance: GOLIMUMAB
     Indication: COLITIS ULCERATIVE
     Route: 058
     Dates: start: 20151115
  16. ACETAZOLAMIDE. [Concomitant]
     Active Substance: ACETAZOLAMIDE
     Route: 048
  17. CALCIUM [Concomitant]
     Active Substance: CALCIUM
     Route: 048
  18. METHOTREXATE [Concomitant]
     Active Substance: METHOTREXATE
     Route: 058
  19. PREDNISONE. [Concomitant]
     Active Substance: PREDNISONE
     Route: 048
  20. PREDNISONE. [Concomitant]
     Active Substance: PREDNISONE
     Route: 048
  21. TOPAMAX [Concomitant]
     Active Substance: TOPIRAMATE
     Indication: PAIN
     Route: 048
  22. ESCITALOPRAM OXALATE. [Concomitant]
     Active Substance: ESCITALOPRAM OXALATE
     Route: 048
  23. SODIUM CHLORIDE. [Concomitant]
     Active Substance: SODIUM CHLORIDE
     Dosage: AS NEEDED
     Route: 045
  24. VITAMIN C [Concomitant]
     Active Substance: ASCORBIC ACID
     Route: 048
  25. BALSALAZIDE DISODIUM. [Concomitant]
     Active Substance: BALSALAZIDE DISODIUM
     Route: 048
  26. LURASIDONE [Concomitant]
     Active Substance: LURASIDONE
     Route: 048

REACTIONS (3)
  - Off label use [Unknown]
  - Injection site rash [Recovered/Resolved]
  - Injection site pruritus [Recovered/Resolved]

NARRATIVE: CASE EVENT DATE: 20151201
